FAERS Safety Report 5236851-3 (Version None)
Quarter: 2007Q1

REPORT INFORMATION
  Report Type: 
  Country: None (occurrence: None)
  Receive Date: 20070213
  Receipt Date: 20070208
  Transmission Date: 20070707
  Serious: Yes (Hospitalization)
  Sender: FDA-Public Use
  Company Number: KR-JNJFOC-20070200875

PATIENT
  Sex: Male
  Weight: 63.8 kg

DRUGS (4)
  1. SPORANOX [Suspect]
     Route: 042
  2. SPORANOX [Suspect]
     Indication: FEBRILE NEUTROPENIA
     Route: 042
  3. TEICOPLANIN [Concomitant]
     Indication: PYREXIA
     Route: 042
  4. MEROPENEM [Concomitant]
     Indication: PYREXIA
     Route: 042

REACTIONS (3)
  - BRONCHOPULMONARY ASPERGILLOSIS [None]
  - NO THERAPEUTIC RESPONSE [None]
  - PNEUMONIA [None]
